FAERS Safety Report 4562717-8 (Version None)
Quarter: 2005Q1

REPORT INFORMATION
  Report Type: 
  Country: None (occurrence: None)
  Receive Date: 20050124
  Receipt Date: 20050111
  Transmission Date: 20050727
  Serious: Yes (Other)
  Sender: FDA-Public Use
  Company Number: DE-2005-000810

PATIENT

DRUGS (4)
  1. ULTRAVIST 370 [Suspect]
     Indication: ARTERIOGRAM CORONARY
  2. METHIMAZOLE [Concomitant]
  3. PERCHLORATE [Concomitant]
  4. SODIUM PERTECHNETATE (99M TC) [Concomitant]

REACTIONS (2)
  - HYPERTHYROIDISM [None]
  - PROCEDURAL COMPLICATION [None]
